FAERS Safety Report 7145766-5 (Version None)
Quarter: 2010Q4

REPORT INFORMATION
  Report Type: 
  Country: None (occurrence: None)
  Receive Date: 20101208
  Receipt Date: 20101124
  Transmission Date: 20110411
  Serious: Yes (Hospitalization)
  Sender: FDA-Public Use
  Company Number: A0804109A

PATIENT
  Age: 61 Year
  Sex: Male

DRUGS (5)
  1. AVANDAMET [Suspect]
     Route: 048
     Dates: start: 20040413, end: 20041227
  2. AVANDIA [Suspect]
     Route: 048
  3. NIACIN [Concomitant]
  4. SYNTHROID [Concomitant]
  5. CELEBREX [Concomitant]

REACTIONS (1)
  - CEREBROVASCULAR ACCIDENT [None]
